FAERS Safety Report 8796775 (Version 1)
Quarter: 2012Q4

REPORT INFORMATION
  Report Type: Report from Study
  Country: DE (occurrence: DE)
  Receive Date: 20120919
  Receipt Date: 20120919
  Transmission Date: 20130627
  Serious: Yes (Hospitalization)
  Sender: FDA-Public Use
  Company Number: DE-ABBOTT-12P-062-0979206-00

PATIENT
  Age: 35 Year
  Sex: Male
  Weight: 60 kg

DRUGS (1)
  1. HUMIRA [Suspect]
     Indication: CROHN^S DISEASE
     Dates: end: 201207

REACTIONS (4)
  - Anal abscess [Recovered/Resolved]
  - Drug ineffective [Unknown]
  - Anal haemorrhage [Recovered/Resolved]
  - Pain [Recovered/Resolved]
